FAERS Safety Report 9372069 (Version 1)
Quarter: 2013Q2

REPORT INFORMATION
  Report Type: Spontaneous
  Country: PL (occurrence: PL)
  Receive Date: 20130627
  Receipt Date: 20130627
  Transmission Date: 20140414
  Serious: Yes (Other)
  Sender: FDA-Public Use
  Company Number: PL-BAYER-2013-074964

PATIENT
  Age: 32 Year
  Sex: Female

DRUGS (5)
  1. BETAFERON [Suspect]
     Indication: RELAPSING-REMITTING MULTIPLE SCLEROSIS
  2. COPAXONE [Suspect]
     Indication: RELAPSING-REMITTING MULTIPLE SCLEROSIS
  3. AVONEX [Suspect]
     Indication: RELAPSING-REMITTING MULTIPLE SCLEROSIS
  4. MITOXANTRONE [Suspect]
     Indication: RELAPSING-REMITTING MULTIPLE SCLEROSIS
  5. FINGOLIMOD [Concomitant]
     Indication: RELAPSING-REMITTING MULTIPLE SCLEROSIS
     Dosage: DAILY DOSE .5 MG
     Route: 048

REACTIONS (7)
  - Expanded disability status scale score increased [None]
  - Multiple sclerosis relapse [None]
  - Sensory disturbance [None]
  - Pyramidal tract syndrome [None]
  - Paraparesis [None]
  - Cerebellar syndrome [None]
  - Drug ineffective [None]
